FAERS Safety Report 14453123 (Version 1)
Quarter: 2018Q1

REPORT INFORMATION
  Report Type: Spontaneous
  Country: US (occurrence: US)
  Receive Date: 20180129
  Receipt Date: 20180129
  Transmission Date: 20180509
  Serious: No
  Sender: FDA-Public Use
  Company Number: US-VIFOR (INTERNATIONAL) INC.-VIT-2018-00115

PATIENT
  Age: 73 Year
  Sex: Female
  Weight: 52 kg

DRUGS (22)
  1. ALPRAZOLAM. [Concomitant]
     Active Substance: ALPRAZOLAM
     Route: 048
     Dates: start: 20170928
  2. CARTIA XT [Concomitant]
     Active Substance: DILTIAZEM HYDROCHLORIDE
     Route: 048
     Dates: start: 20170928
  3. BUMEX [Concomitant]
     Active Substance: BUMETANIDE
     Route: 048
     Dates: start: 20170304
  4. LEVEMIR FLEX PENS [Concomitant]
     Dosage: 100 U/1ML AS DIRECTED
     Route: 058
     Dates: start: 20170928
  5. AMIODARONE [Concomitant]
     Active Substance: AMIODARONE
     Route: 048
     Dates: start: 20170304
  6. DILTIAZEM. [Concomitant]
     Active Substance: DILTIAZEM
     Route: 048
     Dates: start: 20170304
  7. COREG [Concomitant]
     Active Substance: CARVEDILOL
     Route: 048
     Dates: start: 20171230
  8. ASA [Concomitant]
     Active Substance: ASPIRIN
     Route: 048
     Dates: start: 20170928
  9. INSULIN ASPART [Concomitant]
     Active Substance: INSULIN ASPART
     Dosage: 100U/ML
     Route: 058
     Dates: start: 20170928
  10. MIRCERA [Suspect]
     Active Substance: METHOXY POLYETHYLENE GLYCOL-EPOETIN BETA
     Indication: ANAEMIA
     Route: 040
     Dates: start: 20171219
  11. VENOFER [Concomitant]
     Active Substance: IRON SUCROSE
     Route: 042
     Dates: start: 20170404
  12. LANTUS INSULIN (SOLARSTAR) [Concomitant]
     Route: 058
     Dates: start: 20170928
  13. MIRCERA [Suspect]
     Active Substance: METHOXY POLYETHYLENE GLYCOL-EPOETIN BETA
     Route: 042
     Dates: start: 20171110
  14. BUMEX [Concomitant]
     Active Substance: BUMETANIDE
     Route: 048
     Dates: start: 20171230
  15. ZEMPLAR MDV [Concomitant]
     Dosage: EVERY SCHEDULED DIALYSIS TREATMENT
     Route: 042
     Dates: start: 20171007
  16. HEPARIN [Concomitant]
     Active Substance: HEPARIN SODIUM
     Dosage: 5000U/ML-PACKING 1.6ML
     Dates: start: 20170323
  17. HEPARIN [Concomitant]
     Active Substance: HEPARIN SODIUM
     Dosage: 5000U/ML-PACKING 1.6ML
     Dates: start: 20170323
  18. ZEMPLAR MDV [Concomitant]
     Route: 042
     Dates: start: 20171208
  19. CLONIDINE. [Concomitant]
     Active Substance: CLONIDINE
     Dosage: AS NEEDED
     Route: 048
     Dates: start: 20171205
  20. LIQUACEL [Concomitant]
     Route: 048
     Dates: start: 20170615
  21. CALCIUM ACETATE. [Concomitant]
     Active Substance: CALCIUM ACETATE
     Route: 048
     Dates: start: 20170304
  22. MIRCERA [Suspect]
     Active Substance: METHOXY POLYETHYLENE GLYCOL-EPOETIN BETA
     Route: 042
     Dates: start: 20171218

REACTIONS (2)
  - No adverse event [Recovered/Resolved]
  - Medication error [Unknown]

NARRATIVE: CASE EVENT DATE: 20171219
